FAERS Safety Report 8118945-8 (Version None)
Quarter: 2012Q1

REPORT INFORMATION
  Report Type: 
  Country: None (occurrence: None)
  Receive Date: 20120207
  Receipt Date: 20120130
  Transmission Date: 20120608
  Serious: Yes (Other)
  Sender: FDA-Public Use
  Company Number: US-PFIZER INC-2012023979

PATIENT
  Sex: Female
  Weight: 90.703 kg

DRUGS (3)
  1. LIPITOR [Suspect]
     Indication: BLOOD CHOLESTEROL INCREASED
     Dosage: 20 MG, DAILY
     Dates: start: 20111201, end: 20120101
  2. SYNTHROID [Concomitant]
     Indication: THYROID DISORDER
     Dosage: 112 UG, DAILY
  3. METOPROLOL [Concomitant]
     Indication: HYPERTENSION
     Dosage: 100 MG, 2X/DAY

REACTIONS (5)
  - HYPERTHYROIDISM [None]
  - CHILLS [None]
  - FEELING COLD [None]
  - TEMPERATURE INTOLERANCE [None]
  - SOMNOLENCE [None]
